FAERS Safety Report 7541438-3 (Version None)
Quarter: 2011Q2

REPORT INFORMATION
  Report Type: 
  Country: None (occurrence: None)
  Receive Date: 20110613
  Receipt Date: 20110602
  Transmission Date: 20111010
  Serious: Yes (Hospitalization)
  Sender: FDA-Public Use
  Company Number: US-BIOGENIDEC-2011BI020766

PATIENT
  Age: 54 Year
  Sex: Female

DRUGS (7)
  1. TYSABRI [Suspect]
     Indication: MULTIPLE SCLEROSIS
     Route: 042
     Dates: start: 20080325
  2. CELEXA [Concomitant]
     Indication: DEPRESSION
  3. TEGRETOL [Concomitant]
     Indication: CONVULSION
  4. NEURONTIN [Concomitant]
  5. KEPPRA [Concomitant]
     Indication: CONVULSION
  6. ZOCOR [Concomitant]
     Indication: HYPERLIPIDAEMIA
  7. SYNTHROID [Concomitant]
     Indication: HYPOTHYROIDISM

REACTIONS (2)
  - HERPES ZOSTER OPHTHALMIC [None]
  - VIRAL INFECTION [None]
